FAERS Safety Report 23345758 (Version 1)
Quarter: 2023Q4

REPORT INFORMATION
  Report Type: Spontaneous
  Country: CH (occurrence: CH)
  Receive Date: 20231228
  Receipt Date: 20231228
  Transmission Date: 20240110
  Serious: Yes (Other)
  Sender: FDA-Public Use
  Company Number: None

PATIENT
  Age: 96 Year
  Sex: Male
  Weight: 70.3 kg

DRUGS (28)
  1. SPIRONOLACTONE [Suspect]
     Active Substance: SPIRONOLACTONE
     Dosage: 12.5 MG, QD
     Route: 048
  2. IRBESARTAN [Suspect]
     Active Substance: IRBESARTAN
     Dosage: 150 MG QD
     Route: 048
     Dates: end: 20231120
  3. ZOLPIDEM TARTRATE [Suspect]
     Active Substance: ZOLPIDEM TARTRATE
     Dosage: UNK UNK, PRN (AS NECESSARY)
     Dates: start: 202311
  4. ZOLPIDEM TARTRATE [Suspect]
     Active Substance: ZOLPIDEM TARTRATE
     Dosage: UNK, AT 11:50 P.M
     Dates: start: 20231122, end: 20231122
  5. ZOLPIDEM TARTRATE [Suspect]
     Active Substance: ZOLPIDEM TARTRATE
     Dosage: UNK, SHORTLY AFTER MIDNIGHT
     Dates: start: 20231126, end: 20231126
  6. ZOLPIDEM TARTRATE [Suspect]
     Active Substance: ZOLPIDEM TARTRATE
     Dosage: UNK, AT APPROXIMATELY 9 P.M
     Dates: start: 20231126, end: 20231126
  7. TORSEMIDE [Concomitant]
     Active Substance: TORSEMIDE
     Dosage: 10 MG, QD
     Route: 048
  8. ELIQUIS [Concomitant]
     Active Substance: APIXABAN
     Dosage: 2.5 MG, BID
     Route: 048
  9. EUTHYROX [Concomitant]
     Active Substance: LEVOTHYROXINE SODIUM
     Dosage: 25 MCG QD
     Route: 048
  10. DUTASTERIDE\TAMSULOSIN [Concomitant]
     Active Substance: DUTASTERIDE\TAMSULOSIN
     Dosage: UNK, QD
     Route: 048
  11. MIRABEGRON [Concomitant]
     Active Substance: MIRABEGRON
     Dosage: 50 MG, QD
     Route: 048
  12. PRAVASTATIN [Concomitant]
     Active Substance: PRAVASTATIN
     Dosage: 40 MG, QD
     Dates: end: 20231121
  13. MAGNESIUM DIASPORAL [MAGNESIUM CITRATE] [Concomitant]
     Dosage: 150 MG, QD ( SACHETS )
  14. ROSUVASTATIN CALCIUM [Concomitant]
     Active Substance: ROSUVASTATIN CALCIUM
     Dosage: 5 MG, QD
     Route: 048
     Dates: start: 20231121
  15. DAFALGAN [Concomitant]
     Active Substance: ACETAMINOPHEN
     Dosage: 500 MG, TID
     Route: 048
     Dates: start: 20231124
  16. ATROVENT [Concomitant]
     Active Substance: IPRATROPIUM BROMIDE
     Dosage: 0.25 MG/2 ML
     Route: 055
     Dates: start: 20231123
  17. SALBUTAMOL-RATIOPHARM N [Concomitant]
     Dosage: 1.25 MG/2.5 ML
     Route: 055
     Dates: start: 20231123
  18. LACRI VISION [HYALURONATE SODIUM] [Concomitant]
     Dosage: UNK UNK, TID (BOTH SIDES)
     Route: 057
     Dates: start: 20231121
  19. DOMPERIDONE [Concomitant]
     Active Substance: DOMPERIDONE
     Dosage: UNK, PRN
     Dates: start: 20231120, end: 20231127
  20. LAXIPEG [Concomitant]
     Dosage: 10 G, PRN (AS NECESSARY)
     Dates: start: 20231120, end: 20231127
  21. VALVERDE SCHLAF [Concomitant]
     Dosage: UNK UNK, PRN (AS NECESSARY)
     Route: 048
     Dates: start: 20231120
  22. METAMIZOLE [Concomitant]
     Active Substance: METAMIZOLE
     Dosage: 500 MG, PRN (AS NECESSARY)
     Route: 048
     Dates: start: 20231121
  23. RESORBA [Concomitant]
     Dosage: UNK, PRN (AS NECESSARY)
     Route: 061
     Dates: start: 20231126
  24. RINGER-ACETAT [Concomitant]
     Dosage: UNK
     Route: 041
     Dates: start: 20231120, end: 20231121
  25. NACL B.BRAUN [Concomitant]
     Dosage: UNK
     Route: 041
     Dates: start: 20231123, end: 20231123
  26. RINGER-LACTAT [Concomitant]
     Dosage: UNK
     Route: 041
     Dates: start: 20231121, end: 20231123
  27. ACETAMINOPHEN [Concomitant]
     Active Substance: ACETAMINOPHEN
     Dosage: UNK
     Route: 041
     Dates: start: 20231123, end: 20231124
  28. SODIUM CHLORIDE [Concomitant]
     Active Substance: SODIUM CHLORIDE
     Dosage: UNK
     Route: 041
     Dates: start: 20231123, end: 20231127

REACTIONS (2)
  - Hyperkalaemia [Recovered/Resolved]
  - Fall [Recovered/Resolved]

NARRATIVE: CASE EVENT DATE: 20231120
